FAERS Safety Report 8950677 (Version 1)
Quarter: 2012Q4

REPORT INFORMATION
  Report Type: Report from Study
  Country: JP (occurrence: JP)
  Receive Date: 20121207
  Receipt Date: 20121207
  Transmission Date: 20130627
  Serious: Yes (Hospitalization)
  Sender: FDA-Public Use
  Company Number: JP-MERCK-1211JPN012497

PATIENT
  Age: 69 Year
  Sex: Female
  Weight: 45.4 kg

DRUGS (7)
  1. TEMOZOLOMIDE [Suspect]
     Indication: GLIOBLASTOMA
     Dosage: 75 mg/m2, qd
     Route: 048
     Dates: start: 20100624, end: 20100805
  2. STUDY DRUG (UNSPECIFIED) [Suspect]
     Indication: GLIOBLASTOMA
     Dosage: infusion 1 in 2 weeks.
     Route: 042
     Dates: start: 20100624, end: 20100805
  3. SULFAMETHOXAZOLE [Suspect]
     Dosage: UNK
     Dates: start: 20100624, end: 20100830
  4. ETIZOLAM [Suspect]
     Dosage: 0.5 mg, UNK
     Dates: start: 20100611
  5. BROTIZOLAM [Suspect]
     Dosage: 0.25 mg,qd
     Dates: start: 20100614
  6. MAGNESIUM OXIDE [Suspect]
     Dosage: 750 mg, UNK
     Dates: start: 20100627
  7. TROPISETRON HYDROCHLORIDE [Suspect]

REACTIONS (2)
  - Eosinophilia [Recovered/Resolved]
  - Cytomegalovirus infection [Recovered/Resolved]
